FAERS Safety Report 9880684 (Version 1)
Quarter: 2014Q1

REPORT INFORMATION
  Report Type: Spontaneous
  Country: US (occurrence: None)
  Receive Date: 20140206
  Receipt Date: 20140206
  Transmission Date: 20141002
  Serious: Yes (Life-Threatening, Hospitalization, Disabling)
  Sender: FDA-Public Use
  Company Number: None

PATIENT
  Age: 25 Year
  Sex: Male
  Weight: 40.9 kg

DRUGS (1)
  1. ONFI [Suspect]
     Indication: CONVULSION
     Dates: start: 201304

REACTIONS (14)
  - Drooling [None]
  - Lethargy [None]
  - Muscular weakness [None]
  - Balance disorder [None]
  - Somnolence [None]
  - Convulsion [None]
  - Aspiration [None]
  - White blood cell count decreased [None]
  - Red blood cell count decreased [None]
  - Platelet count decreased [None]
  - Mineral deficiency [None]
  - Nervous system disorder [None]
  - Lupus-like syndrome [None]
  - Asthenia [None]
